FAERS Safety Report 6153811-9 (Version None)
Quarter: 2009Q2

REPORT INFORMATION
  Report Type: 
  Country: None (occurrence: None)
  Receive Date: 20090414
  Receipt Date: 20070605
  Transmission Date: 20091009
  Serious: Yes (Hospitalization, Other)
  Sender: FDA-Public Use
  Company Number: US-ASTRAZENECA-2006UW24658

PATIENT
  Age: 18314 Day
  Sex: Female
  Weight: 96.6 kg

DRUGS (22)
  1. SEROQUEL [Suspect]
     Indication: MENTAL DISORDER
     Route: 048
  2. SEROQUEL [Suspect]
     Indication: BIPOLAR DISORDER
     Route: 048
  3. SEROQUEL [Suspect]
     Indication: SCHIZOAFFECTIVE DISORDER
     Route: 048
  4. SEROQUEL [Suspect]
     Indication: OBSESSIVE-COMPULSIVE DISORDER
     Route: 048
  5. SEROQUEL [Suspect]
     Dosage: 100 MG- 1200 MG
     Route: 048
     Dates: start: 20000114
  6. SEROQUEL [Suspect]
     Dosage: 100 MG- 1200 MG
     Route: 048
     Dates: start: 20000114
  7. SEROQUEL [Suspect]
     Dosage: 100 MG- 1200 MG
     Route: 048
     Dates: start: 20000114
  8. SEROQUEL [Suspect]
     Dosage: 100 MG- 1200 MG
     Route: 048
     Dates: start: 20000114
  9. GLUCOVANCE [Concomitant]
  10. PREMARIN [Concomitant]
  11. PROVERA [Concomitant]
  12. ATIVAN [Concomitant]
  13. ROMERON [Concomitant]
  14. HYDROCHLOROTHIAZIDE [Concomitant]
  15. DALMANE [Concomitant]
  16. OXYCONTIN [Concomitant]
  17. METHOTREXATE [Concomitant]
  18. XANAX [Concomitant]
  19. PLAQUENIL [Concomitant]
  20. DARVOCET [Concomitant]
  21. SYNTHROID [Concomitant]
  22. NEXIUM [Concomitant]

REACTIONS (41)
  - ANXIETY [None]
  - ASTHMA [None]
  - BIPOLAR DISORDER [None]
  - BLOOD PRESSURE DECREASED [None]
  - BRONCHITIS [None]
  - CATARACT NUCLEAR [None]
  - DEPRESSION [None]
  - DIABETES MELLITUS [None]
  - DIABETIC NEUROPATHY [None]
  - ENDOMETRIAL HYPERPLASIA [None]
  - EXCORIATION [None]
  - FATIGUE [None]
  - FIBROMYALGIA [None]
  - HEADACHE [None]
  - HEPATITIS C [None]
  - HYPERCHOLESTEROLAEMIA [None]
  - HYPERLIPIDAEMIA [None]
  - HYPERTENSIVE HEART DISEASE [None]
  - HYPOTHYROIDISM [None]
  - INSOMNIA [None]
  - JOINT INJURY [None]
  - MALAISE [None]
  - MIGRAINE [None]
  - MUSCULOSKELETAL CHEST PAIN [None]
  - NAUSEA [None]
  - OBSESSIVE-COMPULSIVE DISORDER [None]
  - OSTEOARTHRITIS [None]
  - OSTEOPOROSIS [None]
  - OTITIS MEDIA [None]
  - PAIN [None]
  - PANIC DISORDER WITH AGORAPHOBIA [None]
  - POOR QUALITY SLEEP [None]
  - RASH PRURITIC [None]
  - REFLUX GASTRITIS [None]
  - RHEUMATOID ARTHRITIS [None]
  - RHINITIS ALLERGIC [None]
  - SCHIZOAFFECTIVE DISORDER [None]
  - SCIATICA [None]
  - SUICIDAL IDEATION [None]
  - URINARY TRACT INFECTION [None]
  - VOMITING [None]
